FAERS Safety Report 8817816 (Version 3)
Quarter: 2012Q4

REPORT INFORMATION
  Report Type: 
  Country: US (occurrence: US)
  Receive Date: 20121004
  Receipt Date: 20121017
  Transmission Date: 20130627
  Serious: Yes (Hospitalization, Disabling, Other)
  Sender: FDA-Public Use
  Company Number: US-MERCK-1210USA002064

PATIENT
  Age: 68 Year
  Sex: Female
  Weight: 105.67 kg

DRUGS (6)
  1. JANUVIA [Suspect]
     Indication: TYPE 2 DIABETES MELLITUS
     Dosage: 100 mg, qd
     Dates: start: 20120101, end: 201209
  2. LANTUS [Concomitant]
     Indication: TYPE 2 DIABETES MELLITUS
     Dosage: UNK
     Dates: start: 201205
  3. VICTOZA [Concomitant]
     Indication: TYPE 2 DIABETES MELLITUS
     Dosage: UNK
     Dates: start: 201205, end: 201209
  4. EFFIENT [Concomitant]
     Indication: CARDIOVASCULAR DISORDER
  5. ESTROL [Concomitant]
     Indication: MENOPAUSE
     Dosage: UNK
  6. TERAZOSIN HYDROCHLORIDE [Concomitant]
     Indication: HYPERTENSION

REACTIONS (2)
  - Pancreatic carcinoma [Not Recovered/Not Resolved]
  - Thrombosis [Unknown]
